FAERS Safety Report 4406744-X (Version None)
Quarter: 2004Q3

REPORT INFORMATION
  Report Type: 
  Country: None (occurrence: None)
  Receive Date: 20040715
  Receipt Date: 20040706
  Transmission Date: 20050211
  Serious: No
  Sender: FDA-Public Use
  Company Number: 2004UW11426

PATIENT
  Age: 56 Year
  Sex: Female

DRUGS (5)
  1. NEXIUM [Suspect]
     Indication: GASTROINTESTINAL DISORDER
     Dosage: 40 MG PRN PO
     Route: 048
     Dates: start: 20031101
  2. NEXIUM [Suspect]
     Indication: GASTROINTESTINAL DISORDER
     Dosage: 40 MG QD PO
     Route: 048
  3. REMERON [Concomitant]
  4. VALIUM [Concomitant]
  5. TOPAMAX [Concomitant]

REACTIONS (3)
  - ABDOMINAL PAIN UPPER [None]
  - FAECAL INCONTINENCE [None]
  - NAUSEA [None]
